FAERS Safety Report 22151338 (Version 1)
Quarter: 2023Q1

REPORT INFORMATION
  Report Type: Spontaneous
  Country: US (occurrence: None)
  Receive Date: 20230328
  Receipt Date: 20230328
  Transmission Date: 20230417
  Serious: Yes (Disabling, Congenital Anomaly, Other)
  Sender: FDA-Public Use
  Company Number: None

PATIENT
  Age: 0 Year
  Sex: Female
  Weight: 2.7 kg

DRUGS (1)
  1. RITODRINE HYDROCHLORIDE [Suspect]
     Active Substance: RITODRINE HYDROCHLORIDE
     Indication: Postponement of preterm delivery
     Dosage: FREQUENCY : EVERY 6 HOURS;?
     Route: 048

REACTIONS (8)
  - Maternal exposure during pregnancy [None]
  - Maternal drugs affecting foetus [None]
  - Poor feeding infant [None]
  - Sleep disorder [None]
  - Screaming [None]
  - Anger [None]
  - Epilepsy [None]
  - Mood altered [None]

NARRATIVE: CASE EVENT DATE: 19881211
